FAERS Safety Report 8240458-3 (Version None)
Quarter: 2012Q1

REPORT INFORMATION
  Report Type: 
  Country: None (occurrence: None)
  Receive Date: 20120328
  Receipt Date: 20120319
  Transmission Date: 20120608
  Serious: Yes (Other)
  Sender: FDA-Public Use
  Company Number: US-NOVOPROD-347561

PATIENT
  Age: 52 Year
  Sex: Female
  Weight: 54.422 kg

DRUGS (1)
  1. LEVEMIR [Suspect]
     Indication: TYPE 1 DIABETES MELLITUS
     Dosage: 5 U, SINGLE
     Route: 058
     Dates: start: 20120316, end: 20120316

REACTIONS (14)
  - DYSPNOEA [None]
  - RASH [None]
  - THROAT TIGHTNESS [None]
  - VISUAL IMPAIRMENT [None]
  - FATIGUE [None]
  - BLINDNESS TRANSIENT [None]
  - HYPOAESTHESIA [None]
  - INJECTION SITE RASH [None]
  - PARAESTHESIA ORAL [None]
  - NAUSEA [None]
  - DYSARTHRIA [None]
  - INJECTION SITE PRURITUS [None]
  - BLOOD GLUCOSE INCREASED [None]
  - AMNESIA [None]
